FAERS Safety Report 13255807 (Version 1)
Quarter: 2017Q1

REPORT INFORMATION
  Report Type: Spontaneous
  Country: US (occurrence: US)
  Receive Date: 20170219
  Receipt Date: 20170219
  Transmission Date: 20170428
  Serious: Yes (Disabling)
  Sender: FDA-Public Use
  Company Number: None

PATIENT
  Age: 39 Year
  Sex: Female
  Weight: 135 kg

DRUGS (4)
  1. TYLENOL [Concomitant]
     Active Substance: ACETAMINOPHEN
  2. NAPROXEN. [Concomitant]
     Active Substance: NAPROXEN
  3. METRONIDAZOLE. [Concomitant]
     Active Substance: METRONIDAZOLE
  4. LEVOFLOXACIN 500MG [Suspect]
     Active Substance: LEVOFLOXACIN
     Indication: DIVERTICULITIS
     Dosage: ?          QUANTITY:1 TABLET(S);?
     Route: 048
     Dates: start: 20170203, end: 20170218

REACTIONS (2)
  - Paraesthesia [None]
  - Muscle spasms [None]

NARRATIVE: CASE EVENT DATE: 20170217
